FAERS Safety Report 7522543-4 (Version None)
Quarter: 2011Q2

REPORT INFORMATION
  Report Type: 
  Country: None (occurrence: None)
  Receive Date: 20110603
  Receipt Date: 20110531
  Transmission Date: 20111010
  Serious: Yes (Death)
  Sender: FDA-Public Use
  Company Number: AR-PFIZER INC-2011013163

PATIENT
  Age: 75 Year
  Sex: Male

DRUGS (8)
  1. SILDENAFIL CITRATE [Suspect]
     Dosage: UNK
  2. VALSARTAN [Concomitant]
     Dosage: UNK
     Dates: start: 20010101
  3. CARVEDILOL [Concomitant]
     Dosage: UNK
     Dates: start: 20070101
  4. BLINDED THERAPY [Suspect]
     Indication: PROPHYLAXIS
     Dosage: UNK
     Route: 048
     Dates: start: 20090807, end: 20101223
  5. BLINDED THERAPY [Suspect]
     Indication: THROMBOSIS PROPHYLAXIS
  6. LEVOTHYROXINE SODIUM [Concomitant]
  7. OMEPRAZOLE [Concomitant]
     Dosage: UNK
     Dates: start: 20080101
  8. LERCANIDIPINE [Concomitant]
     Dosage: UNK
     Dates: start: 20020101

REACTIONS (1)
  - CARDIAC ARREST [None]
